FAERS Safety Report 16536093 (Version 3)
Quarter: 2019Q3

REPORT INFORMATION
  Report Type: Spontaneous
  Country: US (occurrence: US)
  Receive Date: 20190705
  Receipt Date: 20190819
  Transmission Date: 20191004
  Serious: No
  Sender: FDA-Public Use
  Company Number: US-PFIZER INC-2019273553

PATIENT
  Age: 67 Year
  Sex: Female
  Weight: 47.62 kg

DRUGS (6)
  1. DOFETILIDE. [Suspect]
     Active Substance: DOFETILIDE
     Indication: ATRIAL FIBRILLATION
     Dosage: 750 UG, DAILY (250 MCG TWO CAPSULES IN THE MORNING AND ONE IN THE EVENING)
     Route: 048
     Dates: start: 201004
  2. DOFETILIDE. [Suspect]
     Active Substance: DOFETILIDE
     Dosage: 750 MG, DAILY (500MG ONCE A DAY AM, 250MG ONCE A DAY PM)
  3. DOFETILIDE. [Suspect]
     Active Substance: DOFETILIDE
     Dosage: 750 UG, DAILY (250 MCG TWO CAPSULES IN THE MORNING AND ONE IN THE EVENING)
     Route: 048
     Dates: start: 20190621
  4. METOPROLOL. [Concomitant]
     Active Substance: METOPROLOL
     Indication: BLOOD PRESSURE ABNORMAL
     Dosage: 100 MG, 2X/DAY (50 MG TWO IN THE MORNING AND TWO AT NIGHT)
     Route: 048
     Dates: start: 2003
  5. XARELTO [Concomitant]
     Active Substance: RIVAROXABAN
     Dosage: UNK
  6. XARELTO [Concomitant]
     Active Substance: RIVAROXABAN
     Indication: ANTICOAGULANT THERAPY
     Dosage: 15 MG, 1X/DAY (15 MG ONE AT NIGHTTIME)
     Dates: start: 2010

REACTIONS (4)
  - Overdose [Unknown]
  - Therapeutic product effect incomplete [Not Recovered/Not Resolved]
  - Product storage error [Unknown]
  - Poor quality product administered [Unknown]

NARRATIVE: CASE EVENT DATE: 20190621
